FAERS Safety Report 23251695 (Version 1)
Quarter: 2023Q4

REPORT INFORMATION
  Report Type: Spontaneous
  Country: CA (occurrence: None)
  Receive Date: 20231201
  Receipt Date: 20231201
  Transmission Date: 20240110
  Serious: Yes (Disabling, Other)
  Sender: FDA-Public Use
  Company Number: None

PATIENT
  Age: 47 Year
  Sex: Female
  Weight: 51.75 kg

DRUGS (3)
  1. CEPHALEXIN [Suspect]
     Active Substance: CEPHALEXIN
     Indication: Prophylaxis
     Dosage: OTHER QUANTITY : 28 TABLET(S);?FREQUENCY : EVERY 6 HOURS;?
     Route: 048
     Dates: start: 20231123, end: 20231129
  2. Insulin novo rapid [Concomitant]
  3. TRESIBA [Concomitant]
     Active Substance: INSULIN DEGLUDEC

REACTIONS (12)
  - Postoperative wound infection [None]
  - Delirium [None]
  - Anxiety [None]
  - Dizziness [None]
  - Syncope [None]
  - Nightmare [None]
  - Sleep paralysis [None]
  - Paraesthesia [None]
  - Hypoaesthesia [None]
  - Cold sweat [None]
  - Impaired driving ability [None]
  - Memory impairment [None]

NARRATIVE: CASE EVENT DATE: 20231129
